FAERS Safety Report 15673832 (Version 6)
Quarter: 2020Q2

REPORT INFORMATION
  Report Type: Spontaneous
  Country: US (occurrence: US)
  Receive Date: 20181129
  Receipt Date: 20200427
  Transmission Date: 20200713
  Serious: Yes (Other)
  Sender: FDA-Public Use
  Company Number: US-PFIZER INC-2018115017

PATIENT
  Age: 75 Year
  Sex: Female
  Weight: 104.85 kg

DRUGS (39)
  1. LYRICA [Suspect]
     Active Substance: PREGABALIN
     Indication: NEURALGIA
  2. PENNSAID [Concomitant]
     Active Substance: DICLOFENAC SODIUM
     Dosage: UNK
  3. TRAMADOL. [Concomitant]
     Active Substance: TRAMADOL
     Indication: OSTEOARTHRITIS
     Dosage: 100 MG, UNK
     Route: 048
  4. CALCIUM CARBONATE. [Concomitant]
     Active Substance: CALCIUM CARBONATE
     Dosage: 500 MG
     Route: 048
  5. IBUPROFEN. [Concomitant]
     Active Substance: IBUPROFEN
     Dosage: 200 MG, UNK (EVERY 4 TO 6 HOURS)
  6. LAMOTRIGINE. [Concomitant]
     Active Substance: LAMOTRIGINE
     Dosage: 100 MG, 2X/DAY
  7. TRAMADOL HCL [Concomitant]
     Active Substance: TRAMADOL HYDROCHLORIDE
     Dosage: UNK, 1X/DAY
  8. CITALOPRAM HYDROBROMIDE. [Concomitant]
     Active Substance: CITALOPRAM HYDROBROMIDE
     Indication: MAJOR DEPRESSION
     Dosage: UNK, 1X/DAY (20)
     Dates: start: 20170623
  9. PREMARIN [Concomitant]
     Active Substance: ESTROGENS, CONJUGATED
     Dosage: UNK
  10. SF 5000 PLUS [Concomitant]
     Active Substance: SODIUM FLUORIDE
     Dosage: UNK, 2X/DAY
  11. BISACODYL. [Concomitant]
     Active Substance: BISACODYL
     Indication: CONSTIPATION
     Dosage: 5 MG, DAILY(ONCE DAILY)
     Route: 048
  12. CEPACOL SORE THROAT [BENZOCAINE;MENTHOL] [Concomitant]
     Indication: OROPHARYNGEAL PAIN
     Dosage: DISSOLVE 1 LOZENGE BY MOUTH EVERY 4 HOURS AS NEEDED
     Route: 048
  13. DOCUSATE SODIUM. [Concomitant]
     Active Substance: DOCUSATE SODIUM
     Dosage: 100 MG, UNK
     Dates: start: 20170623
  14. PROTONIX [Concomitant]
     Active Substance: PANTOPRAZOLE SODIUM
     Dosage: 20 MG, 1X/DAY (EVERY MORNING)
  15. TRAZODONE HYDROCHLORIDE. [Concomitant]
     Active Substance: TRAZODONE HYDROCHLORIDE
     Indication: BURSITIS
     Dosage: 100 MG, UNK (AS DIRECTED)
  16. VITAMIN D3 [Concomitant]
     Active Substance: CHOLECALCIFEROL
     Dosage: 1000 IU, UNK
  17. GABAPENTIN. [Concomitant]
     Active Substance: GABAPENTIN
     Dosage: 100 MG, 3X/DAY
     Route: 048
  18. 3M CAVILON ANTIFUNGAL [Concomitant]
     Active Substance: MICONAZOLE NITRATE
     Dosage: 92 G, 3X/DAY
  19. MUPIROCIN. [Concomitant]
     Active Substance: MUPIROCIN
     Dosage: 2 %, 2X/DAY
     Route: 061
  20. NYSTATIN. [Concomitant]
     Active Substance: NYSTATIN
     Dosage: UNK UNK, 2X/DAY(APPLY TOPICALLY TO RIGHT ARMPIT TWICE DAILY UNTIL CLEAR)
     Route: 061
  21. FLEET GLYCERINE [Concomitant]
     Dosage: (1 SUPPOSITORY)
     Route: 054
  22. FOSAMAX [Concomitant]
     Active Substance: ALENDRONATE SODIUM
     Indication: OSTEOPOROSIS
     Dosage: 70 MG, WEEKLY
     Route: 048
  23. LOSARTAN POTASSIUM. [Concomitant]
     Active Substance: LOSARTAN POTASSIUM
     Indication: ESSENTIAL HYPERTENSION
     Dosage: 100 MG, 1X/DAY
  24. COQ 10 [Concomitant]
     Active Substance: UBIDECARENONE
     Dosage: UNK
     Dates: start: 20170623
  25. NAMENDA [Concomitant]
     Active Substance: MEMANTINE HYDROCHLORIDE
     Dosage: 10 MG, UNK
  26. TYLENOL [Concomitant]
     Active Substance: ACETAMINOPHEN
     Dosage: 325 MG, UNK (EVERY 4 TO 6 HOURS)
  27. ACETAMINOPHEN;HYDROCODONE [Concomitant]
     Active Substance: ACETAMINOPHEN\HYDROCODONE
     Dosage: UNK, 3X/DAY(7.5-325MG) BY MOUTH 3 TIMES A DAY)
     Route: 048
  28. OSELTAMIVIR [Concomitant]
     Active Substance: OSELTAMIVIR
     Dosage: 75 MG, 2X/DAY(GIVE 1 CAPSULE BY MOUTH TWICE DAILY FOR5 DAYS WITHIN48 HRS OF ONSET)
     Route: 048
  29. CEPACOL SORE THROAT [BENZOCAINE;MENTHOL] [Concomitant]
     Indication: DRY MOUTH
  30. LYRICA [Suspect]
     Active Substance: PREGABALIN
     Indication: FIBROMYALGIA
     Dosage: 50 MG, 3X/DAY
     Route: 048
     Dates: start: 20170623
  31. QUETIAPINE FUMARATE. [Concomitant]
     Active Substance: QUETIAPINE FUMARATE
     Dosage: 0.5 DF, 1X/DAY (EVERY BEDTIME)
  32. VITAMIN C [Concomitant]
     Active Substance: ASCORBIC ACID
     Dosage: 1000 MG, UNK
  33. PAROXETINE HCL [Concomitant]
     Active Substance: PAROXETINE HYDROCHLORIDE
     Indication: DEPRESSION
     Dosage: 20 MG, 1X/DAY
     Route: 048
  34. POLYETHYLENE GLYCOL [Concomitant]
     Active Substance: POLYETHYLENE GLYCOLS
     Dosage: UNK UNK, 1X/DAY(DISSOLVE 8.SGM IN BOZ OF LIQUID AND GIVE BY MOUTH ONCE EVERY DAY)
     Route: 048
  35. ANTI-DIARRHEAL [Concomitant]
     Active Substance: LOPERAMIDE HYDROCHLORIDE
     Dosage: 2 MG
     Route: 048
  36. CEPACOL SORE THROAT [BENZOCAINE;MENTHOL] [Concomitant]
     Indication: COUGH
  37. ADULT ASPIRIN EC LOW STRENGTH [Concomitant]
     Dosage: UNK, 1X/DAY
     Dates: start: 20170623
  38. BUPROPION HCL ER [Concomitant]
     Active Substance: BUPROPION HYDROCHLORIDE
     Dosage: UNK, 2X/DAY (150)
     Dates: start: 20170623
  39. SENNA TABS [Concomitant]
     Active Substance: SENNOSIDES A AND B
     Indication: ABDOMINAL DISCOMFORT
     Dosage: 8.6 MG, 2X/DAY
     Route: 048

REACTIONS (14)
  - Chronic kidney disease [Unknown]
  - Sleep apnoea syndrome [Unknown]
  - Impaired fasting glucose [Unknown]
  - Intervertebral disc degeneration [Unknown]
  - Hyperlipidaemia [Unknown]
  - Arthralgia [Unknown]
  - Gastrooesophageal reflux disease [Unknown]
  - Migraine [Unknown]
  - Neuritis [Unknown]
  - Hypoaesthesia [Unknown]
  - Dementia [Not Recovered/Not Resolved]
  - Atrophic vulvovaginitis [Unknown]
  - Pain [Unknown]
  - Dysaesthesia [Unknown]
